FAERS Safety Report 9861691 (Version 1)
Quarter: 2014Q1

REPORT INFORMATION
  Report Type: Spontaneous
  Country: US (occurrence: None)
  Receive Date: 20140131
  Receipt Date: 20140131
  Transmission Date: 20141002
  Serious: Yes (Other)
  Sender: FDA-Public Use
  Company Number: None

PATIENT
  Sex: Male
  Weight: 84.82 kg

DRUGS (9)
  1. SIMVASTATIN [Suspect]
     Indication: BLOOD CHOLESTEROL
     Route: 048
     Dates: end: 20131220
  2. LOW DOSE ASPIRIN [Concomitant]
  3. ATENOLOL [Concomitant]
  4. NIFEDEPINE [Concomitant]
  5. GLIPIZIDE [Concomitant]
  6. LOSARTAN [Concomitant]
  7. FUROSEMIDE [Concomitant]
  8. HYDRALAZINE [Concomitant]
  9. CHOLECALCIFEROL [Concomitant]

REACTIONS (1)
  - Asthenia [None]
